FAERS Safety Report 15325558 (Version 1)
Quarter: 2018Q3

REPORT INFORMATION
  Report Type: Spontaneous
  Country: US (occurrence: US)
  Receive Date: 20180822
  Receipt Date: 20180822
  Transmission Date: 20181010
  Serious: No
  Sender: FDA-Public Use
  Company Number: None

PATIENT
  Sex: Female

DRUGS (9)
  1. SENSIPAR [Suspect]
     Active Substance: CINACALCET HYDROCHLORIDE
     Indication: HYPERPARATHYROIDISM
     Route: 048
     Dates: start: 20180711
  2. CARDEILOL [Concomitant]
  3. ALPRAZOLAM. [Concomitant]
     Active Substance: ALPRAZOLAM
  4. GABAPENTIN. [Concomitant]
     Active Substance: GABAPENTIN
  5. CLOBETASOL [Concomitant]
     Active Substance: CLOBETASOL
  6. LISINOPRIL. [Concomitant]
     Active Substance: LISINOPRIL
  7. MIDODRINE [Concomitant]
     Active Substance: MIDODRINE
  8. GLIPIZIDE. [Concomitant]
     Active Substance: GLIPIZIDE
  9. TRUE METREX TES GLUCOSE [Concomitant]

REACTIONS (2)
  - Frequent bowel movements [None]
  - Hypotension [None]
